FAERS Safety Report 8851187 (Version 2)
Quarter: 2013Q1

REPORT INFORMATION
  Report Type: Spontaneous
  Country: US (occurrence: US)
  Receive Date: 20121019
  Receipt Date: 20130117
  Transmission Date: 20140127
  Serious: Yes (Death, Hospitalization)
  Sender: FDA-Public Use
  Company Number: US-BRISTOL-MYERS SQUIBB COMPANY-16710923

PATIENT
  Age: 51 Year
  Sex: Male

DRUGS (10)
  1. YERVOY [Suspect]
     Indication: METASTATIC MALIGNANT MELANOMA
     Dosage: 1 EVERY 3WKS,C1: 06APR12?C2: 27APR12?C3: 18MAY12
     Route: 042
     Dates: start: 20120406, end: 20120518
  2. MORPHINE SULFATE [Concomitant]
     Route: 058
     Dates: start: 20120521, end: 20120521
  3. DEXAMETHASONE [Concomitant]
     Route: 042
     Dates: start: 20120529
  4. DEXTROSE [Concomitant]
     Dates: start: 20120529
  5. ONDANSETRON [Concomitant]
     Dates: start: 20120529
  6. FENTANYL [Concomitant]
     Dosage: 29MAY12: DECREASED TO 50 MCG
  7. DEXAMETHASONE [Concomitant]
     Dosage: INCREASED TO 8 MG 29MAY12; ADMINISTERED AGAIN ON 30-MAY12
  8. ZOLOFT [Concomitant]
  9. OMEPRAZOLE [Concomitant]
  10. TESTOSTERONE [Concomitant]

REACTIONS (2)
  - Malignant neoplasm progression [Fatal]
  - Intestinal perforation [Fatal]
